FAERS Safety Report 7932671-7 (Version None)
Quarter: 2011Q4

REPORT INFORMATION
  Report Type: 
  Country: None (occurrence: None)
  Receive Date: 20111122
  Receipt Date: 20111024
  Transmission Date: 20120403
  Serious: Yes (Hospitalization)
  Sender: FDA-Public Use
  Company Number: CA-JNJFOC-20111013078

PATIENT
  Sex: Female
  Weight: 75 kg

DRUGS (6)
  1. ACETAMINOPHEN [Concomitant]
     Route: 048
  2. ATIVAN [Concomitant]
     Route: 065
  3. REMICADE [Suspect]
     Indication: CROHN'S DISEASE
     Route: 042
     Dates: start: 20110509
  4. REMICADE [Suspect]
     Route: 042
     Dates: start: 20111024
  5. BENADRYL [Concomitant]
     Route: 048
  6. HYDROCORTISONE [Concomitant]
     Route: 048

REACTIONS (10)
  - CARDIAC ENZYMES INCREASED [None]
  - FEELING HOT [None]
  - FLUSHING [None]
  - CARDIAC FLUTTER [None]
  - BLOOD PRESSURE INCREASED [None]
  - INFUSION RELATED REACTION [None]
  - TREATMENT NONCOMPLIANCE [None]
  - CHEST DISCOMFORT [None]
  - CHEST PAIN [None]
  - FEELING ABNORMAL [None]
